FAERS Safety Report 12543011 (Version 1)
Quarter: 2016Q3

REPORT INFORMATION
  Report Type: Report from Study
  Country: US (occurrence: US)
  Receive Date: 20160710
  Receipt Date: 20160710
  Transmission Date: 20161109
  Serious: Yes (Other)
  Sender: FDA-Public Use
  Company Number: US-BEH-2016070923

PATIENT
  Sex: Male

DRUGS (1)
  1. HAEMATE P [Suspect]
     Active Substance: ANTIHEMOPHILIC FACTOR HUMAN
     Indication: PRODUCT USED FOR UNKNOWN INDICATION

REACTIONS (2)
  - Impaired healing [Unknown]
  - Surgery [Unknown]

NARRATIVE: CASE EVENT DATE: 2016
